FAERS Safety Report 13082462 (Version 1)
Quarter: 2017Q1

REPORT INFORMATION
  Report Type: Spontaneous
  Country: US (occurrence: US)
  Receive Date: 20170103
  Receipt Date: 20170103
  Transmission Date: 20170428
  Serious: Yes (Hospitalization)
  Sender: FDA-Public Use
  Company Number: US-PFIZER INC-2016604115

PATIENT
  Age: 81 Year
  Sex: Female
  Weight: 98 kg

DRUGS (1)
  1. BOSULIF [Suspect]
     Active Substance: BOSUTINIB MONOHYDRATE
     Indication: CHRONIC MYELOID LEUKAEMIA
     Dosage: 200 MG, 4X/DAY; 200MG PO QDAY
     Route: 048
     Dates: start: 20150205

REACTIONS (1)
  - Gastrointestinal haemorrhage [Recovered/Resolved]
